FAERS Safety Report 16402216 (Version 1)
Quarter: 2019Q2

REPORT INFORMATION
  Report Type: Spontaneous
  Country: JP (occurrence: JP)
  Receive Date: 20190607
  Receipt Date: 20190607
  Transmission Date: 20190711
  Serious: Yes (Other)
  Sender: FDA-Public Use
  Company Number: PHJP2019JP006068

PATIENT
  Sex: Female

DRUGS (2)
  1. ANGIOTENSIN II [Concomitant]
     Active Substance: ANGIOTENSIN II
     Indication: HYPERTENSION
     Dosage: UNK
     Route: 065
  2. IMATINIB. [Suspect]
     Active Substance: IMATINIB MESYLATE
     Indication: GASTROINTESTINAL STROMAL TUMOUR
     Dosage: UNK
     Route: 048

REACTIONS (7)
  - Oedema peripheral [Recovering/Resolving]
  - Nephrotic syndrome [Unknown]
  - Blood albumin decreased [Recovered/Resolved]
  - Glomerulonephritis membranous [Unknown]
  - Weight increased [Unknown]
  - Protein urine [Recovered/Resolved]
  - Protein total decreased [Recovered/Resolved]
